FAERS Safety Report 21741144 (Version 1)
Quarter: 2022Q4

REPORT INFORMATION
  Report Type: Spontaneous
  Country: US (occurrence: US)
  Receive Date: 20221216
  Receipt Date: 20221216
  Transmission Date: 20230113
  Serious: No
  Sender: FDA-Public Use
  Company Number: US-AVEO ONCOLOGY-2022-AVEO-US000460

PATIENT

DRUGS (12)
  1. FOTIVDA [Suspect]
     Active Substance: TIVOZANIB HYDROCHLORIDE
     Indication: Renal cell carcinoma
     Dosage: 1.34 MG, DAILY FOR 21 DAYS WITH 7 DAYS OFF (28-DAY CYCLE)
     Route: 048
     Dates: start: 20211214
  2. ACYCLOVIR [Concomitant]
     Active Substance: ACYCLOVIR
  3. ATORVASTATIN [Concomitant]
     Active Substance: ATORVASTATIN
  4. CHOLECALCIFEROL [Concomitant]
     Active Substance: CHOLECALCIFEROL
  5. DEXAMETHASONE [Concomitant]
     Active Substance: DEXAMETHASONE
  6. ELIQUIS [Concomitant]
     Active Substance: APIXABAN
  7. FENOFIBRATE [Concomitant]
     Active Substance: FENOFIBRATE
  8. FISH OIL [Concomitant]
     Active Substance: FISH OIL
  9. LOPERAMIDE [Concomitant]
     Active Substance: LOPERAMIDE
  10. METOPROLOL [Concomitant]
     Active Substance: METOPROLOL
  11. MULTIVITAMIN WITH FLUORIDE NOS [Concomitant]
     Active Substance: SODIUM FLUORIDE\VITAMINS
  12. TAMSULOSIN [Concomitant]
     Active Substance: TAMSULOSIN

REACTIONS (1)
  - Food poisoning [Unknown]
